FAERS Safety Report 15772434 (Version 1)
Quarter: 2018Q4

REPORT INFORMATION
  Report Type: Spontaneous
  Country: US (occurrence: US)
  Receive Date: 20181228
  Receipt Date: 20181228
  Transmission Date: 20190205
  Serious: Yes (Other)
  Sender: FDA-Public Use
  Company Number: PHHY2018US194488

PATIENT
  Age: 19 Year
  Sex: Female

DRUGS (1)
  1. GENTEAL MILD [Suspect]
     Active Substance: HYPROMELLOSE 2910 (4000 MPA.S)
     Indication: EYE LUBRICATION THERAPY
     Dosage: UNK
     Route: 047

REACTIONS (5)
  - Conjunctival granuloma [Recovered/Resolved]
  - Pinguecula [Recovered/Resolved]
  - Strabismus [Recovered/Resolved]
  - Ocular discomfort [Recovered/Resolved]
  - Nodule [Recovered/Resolved]
